FAERS Safety Report 9446033 (Version 1)
Quarter: 2013Q3

REPORT INFORMATION
  Report Type: Spontaneous
  Country: FR (occurrence: US)
  Receive Date: 20130807
  Receipt Date: 20130807
  Transmission Date: 20140515
  Serious: Yes (Other)
  Sender: FDA-Public Use
  Company Number: US-FRI-1000047355

PATIENT
  Age: 40 Year
  Sex: Male

DRUGS (1)
  1. MILNACIPRAN [Suspect]
     Indication: FIBROMYALGIA
     Dosage: 100 MG

REACTIONS (5)
  - Aphagia [Unknown]
  - Hemiplegia [Recovered/Resolved]
  - Parkinsonian rest tremor [Recovered/Resolved]
  - Eye movement disorder [Unknown]
  - Withdrawal syndrome [Unknown]
